FAERS Safety Report 5912773-7 (Version None)
Quarter: 2008Q4

REPORT INFORMATION
  Report Type: 
  Country: None (occurrence: None)
  Receive Date: 20081008
  Receipt Date: 20080609
  Transmission Date: 20090506
  Serious: Yes (Hospitalization)
  Sender: FDA-Public Use
  Company Number: US-ABBOTT-08P-163-0456271-00

PATIENT
  Sex: Male
  Weight: 95.34 kg

DRUGS (4)
  1. DEPAKOTE [Suspect]
     Indication: CONVULSION
     Dosage: 6 CAPSULES 2 TIMES A DAY
     Route: 048
     Dates: start: 20080301
  2. IBUPROFEN [Concomitant]
     Indication: PAIN
  3. IBUPROFEN [Concomitant]
     Indication: DISCOMFORT
  4. BLOOD PRESSURE MEDICINE [Concomitant]
     Indication: HYPERTENSION

REACTIONS (1)
  - CONVULSION [None]
